FAERS Safety Report 6982935-9 (Version None)
Quarter: 2010Q3

REPORT INFORMATION
  Report Type: 
  Country: None (occurrence: None)
  Receive Date: 20100914
  Receipt Date: 20100419
  Transmission Date: 20110219
  Serious: Yes (Other)
  Sender: FDA-Public Use
  Company Number: US-PFIZER INC-2010049995

PATIENT
  Sex: Female
  Weight: 72.5 kg

DRUGS (3)
  1. LYRICA [Suspect]
     Indication: NEURALGIA
     Dosage: 50 MG, 3X/DAY
     Route: 048
     Dates: start: 20100416
  2. MINOCYCLINE [Concomitant]
     Dosage: 100 MG, 2X/DAY
  3. AZELAIC ACID [Concomitant]
     Dosage: UNK

REACTIONS (1)
  - VISION BLURRED [None]
